FAERS Safety Report 7374824-5 (Version None)
Quarter: 2011Q1

REPORT INFORMATION
  Report Type: 
  Country: None (occurrence: None)
  Receive Date: 20110325
  Receipt Date: 20110314
  Transmission Date: 20110831
  Serious: Yes (Hospitalization)
  Sender: FDA-Public Use
  Company Number: AU-JNJFOC-20110306994

PATIENT
  Age: 4 Decade
  Sex: Male

DRUGS (2)
  1. UNKNOWN MEDICATION [Concomitant]
  2. SIMPONI [Suspect]
     Indication: ANKYLOSING SPONDYLITIS
     Route: 058

REACTIONS (2)
  - ANKYLOSING SPONDYLITIS [None]
  - SPINAL CORD COMPRESSION [None]
